FAERS Safety Report 13163535 (Version 5)
Quarter: 2017Q3

REPORT INFORMATION
  Report Type: Spontaneous
  Country: KR (occurrence: KR)
  Receive Date: 20170130
  Receipt Date: 20170804
  Transmission Date: 20171127
  Serious: Yes (Death, Other)
  Sender: FDA-Public Use
  Company Number: KR-009507513-1701KOR012188

PATIENT
  Age: 66 Year
  Sex: Male
  Weight: 64.8 kg

DRUGS (33)
  1. EMEND (FOSAPREPITANT DIMEGLUMINE) [Suspect]
     Active Substance: FOSAPREPITANT DIMEGLUMINE
     Dosage: 150 MG, ONCE
     Route: 042
     Dates: start: 20160831, end: 20160831
  2. CISPLAN [Concomitant]
     Active Substance: CISPLATIN
     Indication: BLADDER CANCER
     Dosage: 64.8 MG, ONCE, CYCLE 1; CONCENTRATION: 50MG/100ML
     Route: 042
     Dates: start: 20160729, end: 20160729
  3. ADRIAMYCIN [Concomitant]
     Active Substance: DOXORUBICIN HYDROCHLORIDE
     Dosage: 76 MG, ONCE, CYCLE 2
     Route: 042
     Dates: start: 20160831, end: 20160831
  4. DEXAMETHASONE SODIUM PHOSPHATE. [Concomitant]
     Active Substance: DEXAMETHASONE SODIUM PHOSPHATE
     Indication: PREMEDICATION
     Dosage: 7.5 MG, ONCE; CONCENTRATION: 5MG/ML
     Route: 042
     Dates: start: 20160729, end: 20160729
  5. ONDANT [Concomitant]
     Dosage: 8 MG, ONCE
     Route: 042
     Dates: start: 20160831, end: 20160831
  6. MEGACE F [Concomitant]
     Indication: PROPHYLAXIS
     Dosage: 1 PK, ONCE
     Route: 048
     Dates: start: 20160730, end: 20160806
  7. MEGACE F [Concomitant]
     Dosage: 1 PK, QD
     Route: 048
     Dates: start: 20160826, end: 20160904
  8. VELBASTINE [Concomitant]
     Dosage: 4 MG, ONCE, CYCLE 1
     Route: 042
     Dates: start: 20160812, end: 20160812
  9. ALOXI [Concomitant]
     Active Substance: PALONOSETRON HYDROCHLORIDE
     Dosage: 0.25 MG, ONCE
     Route: 042
     Dates: start: 20160831, end: 20160831
  10. ONDANT [Concomitant]
     Dosage: 8 MG, ONCE
     Route: 042
     Dates: start: 20160902, end: 20160902
  11. FERBON [Concomitant]
     Indication: PROPHYLAXIS
     Dosage: 15 MG, ONCE; CONCENTRATION: 15MG/ML
     Route: 042
     Dates: start: 20160730, end: 20160730
  12. CISPLAN [Concomitant]
     Active Substance: CISPLATIN
     Dosage: 50 MG, ONCE, CYCLE 2; CONCENTRATION: 50MG/100ML
     Route: 042
     Dates: start: 20160831, end: 20160831
  13. ADRIAMYCIN [Concomitant]
     Active Substance: DOXORUBICIN HYDROCHLORIDE
     Indication: BLADDER CANCER
     Dosage: 48.5 MG, ONCE, CYCLE 1
     Route: 042
     Dates: start: 20160729, end: 20160729
  14. DEXAMETHASONE SODIUM PHOSPHATE. [Concomitant]
     Active Substance: DEXAMETHASONE SODIUM PHOSPHATE
     Dosage: 4 MG, ONCE; CONCENTRATION: 5MG/ML
     Route: 042
     Dates: start: 20160730, end: 20160730
  15. IRCODON [Concomitant]
     Active Substance: OXYCODONE HYDROCHLORIDE
     Dosage: 10 MG, QID
     Route: 048
     Dates: start: 20160809, end: 20160904
  16. MTX [Concomitant]
     Active Substance: METHOTREXATE SODIUM
     Dosage: 30 MG, ONCE, CYCLE 2; CONCENTRATION: 50MG/2ML
     Route: 042
     Dates: start: 20160829, end: 20160829
  17. ALOXI [Concomitant]
     Active Substance: PALONOSETRON HYDROCHLORIDE
     Indication: PREMEDICATION
     Dosage: 0.25 MG, ONCE
     Route: 042
     Dates: start: 20160729, end: 20160729
  18. IRCODON [Concomitant]
     Active Substance: OXYCODONE HYDROCHLORIDE
     Indication: PAIN
     Dosage: 5 MG, QID
     Route: 048
     Dates: start: 20160728, end: 20160808
  19. VELBASTINE [Concomitant]
     Indication: BLADDER CANCER
     Dosage: 4.86 MG, ONCE, CYCLE 1
     Route: 042
     Dates: start: 20160729, end: 20160729
  20. ONDANT [Concomitant]
     Indication: PREMEDICATION
     Dosage: 8 MG, ONCE
     Route: 042
     Dates: start: 20160729, end: 20160729
  21. HEPARIN SODIUM. [Concomitant]
     Active Substance: HEPARIN SODIUM
     Dosage: 1 ML, ONCE
     Route: 042
     Dates: start: 20160830, end: 20160830
  22. COZAAR [Concomitant]
     Active Substance: LOSARTAN POTASSIUM
     Indication: PROPHYLAXIS
     Dosage: 50 MG (1 TABLET), QD
     Route: 048
     Dates: start: 20160727, end: 20160730
  23. TYLENOL ER [Concomitant]
     Active Substance: ACETAMINOPHEN
     Indication: PROPHYLAXIS
     Dosage: 1300 MG (2 TABLETS), ONCE
     Route: 048
     Dates: start: 20160727, end: 20160727
  24. EMEND (FOSAPREPITANT DIMEGLUMINE) [Suspect]
     Active Substance: FOSAPREPITANT DIMEGLUMINE
     Indication: PROPHYLAXIS OF NAUSEA AND VOMITING
     Dosage: 150 MG, ONCE
     Route: 042
     Dates: start: 20160729, end: 20160729
  25. HEPARIN SODIUM. [Concomitant]
     Active Substance: HEPARIN SODIUM
     Indication: PROPHYLAXIS
     Dosage: 1 ML, ONCE
     Route: 042
     Dates: start: 20160730, end: 20160730
  26. MTX [Concomitant]
     Active Substance: METHOTREXATE SODIUM
     Indication: BLADDER CANCER
     Dosage: 35 MG, ONCE, CYCLE 1; CONCENTRATION: 50MG/2ML
     Route: 042
     Dates: start: 20160728, end: 20160728
  27. MTX [Concomitant]
     Active Substance: METHOTREXATE SODIUM
     Dosage: 35 MG, ONCE, CYCLE 1; CONCENTRATION: 50MG/2ML
     Route: 042
     Dates: start: 20160812, end: 20160812
  28. VIMOVO [Concomitant]
     Active Substance: ESOMEPRAZOLE MAGNESIUM\NAPROXEN
     Indication: PAIN
     Dosage: 500/20MG (1 TABLET ), BID
     Route: 048
     Dates: start: 20160728, end: 20160904
  29. MUCOSTA [Concomitant]
     Active Substance: REBAMIPIDE
     Indication: PROPHYLAXIS
     Dosage: 100 MG (1 TABLET), TID
     Route: 048
     Dates: start: 20160827, end: 20160902
  30. VELBASTINE [Concomitant]
     Dosage: 3.8 MG, ONCE, CYCLE 2
     Route: 042
     Dates: start: 20160831, end: 20160831
  31. DEXAMETHASONE SODIUM PHOSPHATE. [Concomitant]
     Active Substance: DEXAMETHASONE SODIUM PHOSPHATE
     Dosage: 10 MG, ONCE; CONCENTRATION: 5MG/ML
     Route: 042
     Dates: start: 20160831, end: 20160831
  32. FERBON [Concomitant]
     Dosage: 15 MG, ONCE; CONCENTRATION: 15MG/ML
     Route: 042
     Dates: start: 20160812, end: 20160812
  33. TYLENOL ER [Concomitant]
     Active Substance: ACETAMINOPHEN
     Dosage: 650 MG (1 TABLETS), ONCE
     Route: 048
     Dates: start: 20160902, end: 20160903

REACTIONS (6)
  - Diarrhoea [Recovered/Resolved]
  - Nausea [Not Recovered/Not Resolved]
  - Septic shock [Fatal]
  - Haematuria [Not Recovered/Not Resolved]
  - Hyperkalaemia [Not Recovered/Not Resolved]
  - Constipation [Not Recovered/Not Resolved]

NARRATIVE: CASE EVENT DATE: 20160805
